FAERS Safety Report 7563669-9 (Version None)
Quarter: 2011Q2

REPORT INFORMATION
  Report Type: 
  Country: None (occurrence: None)
  Receive Date: 20110622
  Receipt Date: 20110607
  Transmission Date: 20111010
  Serious: Yes (Hospitalization)
  Sender: FDA-Public Use
  Company Number: US-ROCHE-783226

PATIENT

DRUGS (3)
  1. BEVACIZUMAB [Suspect]
     Indication: COLORECTAL CANCER
     Dosage: OVER 30-90 MINS PER OTHER WEEK ON DAYS 01, 15 AND 29 DURING RT
     Route: 042
     Dates: start: 20100301
  2. OXALIPLATIN [Suspect]
     Indication: COLORECTAL CANCER
     Dosage: OVER 2 HRS PER WEEK ON DAYS 01, 08, 15, 22 AND 29 DURING RT
     Route: 042
     Dates: start: 20100311
  3. CAPECITABINE [Suspect]
     Indication: COLORECTAL CANCER
     Dosage: 5 DAYS/ WEEK STARTING ON DAY -1 TO RT
     Route: 048
     Dates: start: 20100301

REACTIONS (5)
  - CEREBRAL ISCHAEMIA [None]
  - DYSPNOEA [None]
  - VISION BLURRED [None]
  - DYSARTHRIA [None]
  - VENTRICULAR TACHYARRHYTHMIA [None]
